FAERS Safety Report 10019798 (Version 1)
Quarter: 2014Q1

REPORT INFORMATION
  Report Type: Spontaneous
  Country: US (occurrence: US)
  Receive Date: 20140318
  Receipt Date: 20140318
  Transmission Date: 20141002
  Serious: No
  Sender: FDA-Public Use
  Company Number: US-GALDERMA-US13003923

PATIENT
  Age: 26 Year
  Sex: Male

DRUGS (6)
  1. MIRVASO (BRIMONIDINE) TOPICAL GEL, 0.33% [Suspect]
     Indication: ERYTHEMA
     Dosage: 0.33%
     Route: 061
     Dates: start: 20131119, end: 20131121
  2. MIRVASO (BRIMONIDINE) TOPICAL GEL, 0.33% [Suspect]
     Dosage: 0.33%
     Dates: start: 20131202
  3. ENBREL (ETANERCEPT) [Concomitant]
     Indication: PSORIASIS
     Dates: start: 2009
  4. DOVE MENS SENSITIVE FACE WASH [Concomitant]
     Indication: THERAPEUTIC SKIN CARE TOPICAL
     Route: 061
  5. AVEENO DAILY MOISTURIZER [Concomitant]
     Indication: DRY SKIN PROPHYLAXIS
     Route: 061
  6. CLOBETASOL OINTMENT [Concomitant]
     Indication: PSORIASIS
     Route: 061
     Dates: start: 2007

REACTIONS (2)
  - Condition aggravated [Not Recovered/Not Resolved]
  - Off label use [Unknown]
